FAERS Safety Report 20604327 (Version 1)
Quarter: 2022Q1

REPORT INFORMATION
  Report Type: Spontaneous
  Country: US (occurrence: None)
  Receive Date: 20220316
  Receipt Date: 20220316
  Transmission Date: 20220423
  Serious: Yes (Hospitalization)
  Sender: FDA-Public Use
  Company Number: None

PATIENT
  Age: 58 Year
  Sex: Male
  Weight: 52.44 kg

DRUGS (6)
  1. TEMOZOLOMIDE [Suspect]
     Active Substance: TEMOZOLOMIDE
     Indication: Bile duct cancer
     Dosage: FREQUENCY : DAILY;?
     Route: 048
     Dates: start: 20220314
  2. TEMOZOLOMIDE [Suspect]
     Active Substance: TEMOZOLOMIDE
     Indication: Hepatic cancer
  3. CAPECITABINE [Concomitant]
  4. LOMOTIL [Concomitant]
  5. ONDANSETRON [Concomitant]
  6. SANDOSTATIN [Concomitant]

REACTIONS (4)
  - Diarrhoea [None]
  - Vomiting [None]
  - Nausea [None]
  - Hypotension [None]
